FAERS Safety Report 18572870 (Version 1)
Quarter: 2020Q4

REPORT INFORMATION
  Report Type: Spontaneous
  Country: US (occurrence: US)
  Receive Date: 20201203
  Receipt Date: 20201203
  Transmission Date: 20210114
  Serious: Yes (Hospitalization, Other)
  Sender: FDA-Public Use
  Company Number: US-LUPIN PHARMACEUTICALS INC.-2020-09598

PATIENT
  Age: 17 Year
  Sex: Female

DRUGS (27)
  1. LITHIUM. [Concomitant]
     Active Substance: LITHIUM
     Dosage: 300 MILLIGRAM, QD (300 MG DAILY AND 600 MG AT BEDTIME)
  2. CLOZAPINE. [Concomitant]
     Active Substance: CLOZAPINE
     Indication: SCHIZOAFFECTIVE DISORDER BIPOLAR TYPE
     Dosage: 25 MILLIGRAM, QD
     Route: 065
  3. OLANZAPINE. [Suspect]
     Active Substance: OLANZAPINE
     Dosage: 10 MILLIGRAM, AT BEDTIME
     Route: 065
  4. LURASIDONE [Suspect]
     Active Substance: LURASIDONE
     Indication: PSYCHOTIC SYMPTOM
     Dosage: 40 MILLIGRAM, QD
     Route: 065
  5. DIVALPROEX [Suspect]
     Active Substance: DIVALPROEX SODIUM
     Dosage: 1250 MILLIGRAM AT BEDTIME
     Route: 065
  6. METFORMIN [Concomitant]
     Active Substance: METFORMIN HYDROCHLORIDE
     Indication: PROPHYLAXIS
     Dosage: 500 MILLIGRAM, QD
     Route: 065
  7. BUPROPION. [Concomitant]
     Active Substance: BUPROPION
     Indication: DEPRESSIVE SYMPTOM
     Dosage: 100 MILLIGRAM
  8. CLOZAPINE. [Concomitant]
     Active Substance: CLOZAPINE
     Dosage: 125 MILLIGRAM, QD (CLOZAPINE 100 MG DAILY AND 125 MG AT BEDTIME)
     Route: 065
  9. SERTRALINE [Suspect]
     Active Substance: SERTRALINE HYDROCHLORIDE
     Indication: DEPRESSIVE SYMPTOM
     Dosage: 100 MILLIGRAM
     Route: 065
  10. RISPERIDONE. [Concomitant]
     Active Substance: RISPERIDONE
     Dosage: 2 MILLIGRAM, BID
     Route: 065
  11. HALOPERIDOL. [Concomitant]
     Active Substance: HALOPERIDOL
     Indication: PRODUCT USED FOR UNKNOWN INDICATION
     Dosage: UNK
     Route: 065
  12. VALPROIC ACID. [Concomitant]
     Active Substance: VALPROIC ACID
     Indication: SCHIZOAFFECTIVE DISORDER BIPOLAR TYPE
     Dosage: UNK
     Route: 065
  13. BENZTROPINE [BENZATROPINE] [Concomitant]
     Active Substance: BENZTROPINE
     Indication: EXTRAPYRAMIDAL DISORDER
     Dosage: 0.5 MILLIGRAM, BID
     Route: 065
  14. CLOZAPINE. [Concomitant]
     Active Substance: CLOZAPINE
     Dosage: UNK, (TITRATED SLOWLY UPWARD)
     Route: 065
  15. CLOZAPINE. [Concomitant]
     Active Substance: CLOZAPINE
     Dosage: 100 MILLIGRAM, BID
     Route: 065
  16. LURASIDONE [Suspect]
     Active Substance: LURASIDONE
     Dosage: 60 MILLIGRAM, QD (DOSE INCREASED)
     Route: 065
  17. DIVALPROEX [Suspect]
     Active Substance: DIVALPROEX SODIUM
     Indication: SCHIZOAFFECTIVE DISORDER
     Dosage: 500 MILLIGRAM, QD
     Route: 065
  18. CLONIDINE. [Concomitant]
     Active Substance: CLONIDINE
     Indication: AGGRESSION
     Dosage: 0.1 MILLIGRAM, QD
     Route: 065
  19. DIPHENHYDRAMINE. [Concomitant]
     Active Substance: DIPHENHYDRAMINE
     Indication: PRODUCT USED FOR UNKNOWN INDICATION
     Dosage: UNK
     Route: 065
  20. DIVALPROEX [Suspect]
     Active Substance: DIVALPROEX SODIUM
     Dosage: 750 MILLIGRAM, QD AT BEDTIME
     Route: 065
  21. LITHIUM. [Concomitant]
     Active Substance: LITHIUM
     Indication: MOOD SWINGS
     Dosage: 600 MILLIGRAM, QD (300 MG DAILY AND 600 MG AT BEDTIME)
     Route: 065
  22. LORAZEPAM. [Concomitant]
     Active Substance: LORAZEPAM
     Indication: ANXIETY
     Dosage: UNK, AS NECESSARY
     Route: 065
  23. OLANZAPINE. [Suspect]
     Active Substance: OLANZAPINE
     Indication: PSYCHOTIC SYMPTOM
     Dosage: 5 MILLIGRAM
     Route: 030
  24. RISPERIDONE. [Concomitant]
     Active Substance: RISPERIDONE
     Indication: PSYCHOTIC SYMPTOM
     Dosage: 1 MILLIGRAM, BID
     Route: 065
  25. RISPERIDONE. [Concomitant]
     Active Substance: RISPERIDONE
     Dosage: GRADUALLY DECREASED TO DISCONTINUATION WITH CROSS-TAPER OF INCREASING DOSES OF CLOZAPINE
     Route: 065
  26. NAPROXEN. [Concomitant]
     Active Substance: NAPROXEN
     Indication: PAIN
     Dosage: UNK, (AS NECESSARY)
     Route: 065
  27. CLOZAPINE. [Concomitant]
     Active Substance: CLOZAPINE
     Dosage: 100 MILLIGRAM, QD (CLOZAPINE 100 MG DAILY AND 125 MG AT BEDTIME)
     Route: 065

REACTIONS (5)
  - Drug ineffective [Unknown]
  - Mania [Unknown]
  - Condition aggravated [Unknown]
  - Abnormal weight gain [Unknown]
  - Insomnia [Unknown]
